FAERS Safety Report 22528250 (Version 2)
Quarter: 2023Q2

REPORT INFORMATION
  Report Type: Spontaneous
  Country: IT (occurrence: IT)
  Receive Date: 20230607
  Receipt Date: 20230616
  Transmission Date: 20230722
  Serious: Yes (Hospitalization)
  Sender: FDA-Public Use
  Company Number: None

PATIENT
  Age: 68 Year
  Sex: Female

DRUGS (1)
  1. ZOLPIDEM [Suspect]
     Active Substance: ZOLPIDEM TARTRATE
     Indication: Product used for unknown indication
     Dosage: 10 DOSAGE FORM, QD (10 TABLETS) (5 TABS IN THE MORNING AT 8 AM AND 5 TABS IN THE EVENING BEFORE 9 PM
     Route: 065
     Dates: start: 20230218

REACTIONS (5)
  - Bradyphrenia [Recovered/Resolved]
  - Toxicity to various agents [Recovering/Resolving]
  - Tachycardia [Recovered/Resolved]
  - Bradykinesia [Recovered/Resolved]
  - Drug abuse [Recovered/Resolved]

NARRATIVE: CASE EVENT DATE: 20230218
